FAERS Safety Report 8105731-8 (Version None)
Quarter: 2012Q1

REPORT INFORMATION
  Report Type: 
  Country: None (occurrence: None)
  Receive Date: 20120201
  Receipt Date: 20120124
  Transmission Date: 20120608
  Serious: Yes (Hospitalization, Other)
  Sender: FDA-Public Use
  Company Number: US-ASTRAZENECA-2011SE73090

PATIENT
  Age: 75 Year
  Sex: Female

DRUGS (5)
  1. ALBUTEROL [Concomitant]
  2. LOVASTATIN [Concomitant]
  3. RHINOCORT [Suspect]
     Route: 045
  4. NEXIUM [Suspect]
     Route: 048
  5. PULMICORT [Concomitant]
     Route: 055

REACTIONS (6)
  - FEELING ABNORMAL [None]
  - DRUG HYPERSENSITIVITY [None]
  - HIATUS HERNIA [None]
  - FATIGUE [None]
  - NEOPLASM MALIGNANT [None]
  - HAEMORRHAGE [None]
